FAERS Safety Report 25175552 (Version 1)
Quarter: 2025Q2

REPORT INFORMATION
  Report Type: Spontaneous
  Country: US (occurrence: US)
  Receive Date: 20250408
  Receipt Date: 20250408
  Transmission Date: 20250716
  Serious: No
  Sender: NEUROCRINE BIOSCIENCES
  Company Number: US-NEUROCRINE BIOSCIENCES INC.-2025NBI03345

PATIENT
  Sex: Female

DRUGS (4)
  1. INGREZZA [Suspect]
     Active Substance: VALBENAZINE DITOSYLATE
     Indication: Tardive dyskinesia
     Route: 065
     Dates: start: 20250310
  2. ADDERALL [Concomitant]
     Active Substance: AMPHETAMINE ASPARTATE\AMPHETAMINE SULFATE\DEXTROAMPHETAMINE SACCHARATE\DEXTROAMPHETAMINE SULFATE
  3. GEODON [Concomitant]
     Active Substance: ZIPRASIDONE HYDROCHLORIDE\ZIPRASIDONE MESYLATE
  4. SEROQUEL [Concomitant]
     Active Substance: QUETIAPINE FUMARATE

REACTIONS (3)
  - Paraesthesia [Unknown]
  - Hypoaesthesia [Unknown]
  - Feeling abnormal [Unknown]

NARRATIVE: CASE EVENT DATE: 20250310
